FAERS Safety Report 6113021-8 (Version None)
Quarter: 2009Q1

REPORT INFORMATION
  Report Type: 
  Country: None (occurrence: None)
  Receive Date: 20090312
  Receipt Date: 20090305
  Transmission Date: 20090719
  Serious: Yes (Other)
  Sender: FDA-Public Use
  Company Number: B0563283A

PATIENT
  Age: 30 Year
  Sex: Female
  Weight: 65.8 kg

DRUGS (6)
  1. COMBIVIR [Suspect]
     Route: 048
     Dates: start: 20081210
  2. DARUNAVIR [Suspect]
     Dosage: 1200MG PER DAY
     Route: 048
     Dates: start: 20081210
  3. RITONAVIR [Suspect]
     Route: 048
     Dates: start: 20081210
  4. TRUVADA [Concomitant]
     Dates: start: 20080710
  5. VIRAMUNE [Concomitant]
     Dates: start: 20080710
  6. FOLIC ACID [Concomitant]

REACTIONS (1)
  - ABORTION SPONTANEOUS [None]
